FAERS Safety Report 6711529-5 (Version None)
Quarter: 2010Q2

REPORT INFORMATION
  Report Type: 
  Country: None (occurrence: None)
  Receive Date: 20100505
  Receipt Date: 20100422
  Transmission Date: 20101027
  Serious: Yes (Other)
  Sender: FDA-Public Use
  Company Number: PHHY2010DE26452

PATIENT
  Age: 3 Year
  Sex: Male
  Weight: 20 kg

DRUGS (1)
  1. PROVAS [Suspect]
     Dosage: TABLET (320 MG), ONCE/SINGLE
     Route: 048
     Dates: start: 20100422

REACTIONS (1)
  - ACCIDENTAL DRUG INTAKE BY CHILD [None]
